FAERS Safety Report 5100787-9 (Version None)
Quarter: 2006Q3

REPORT INFORMATION
  Report Type: 
  Country: None (occurrence: None)
  Receive Date: 20060906
  Receipt Date: 20060821
  Transmission Date: 20061208
  Serious: Yes (Other)
  Sender: FDA-Public Use
  Company Number: 2006102401

PATIENT
  Age: 47 Year
  Sex: Male

DRUGS (6)
  1. SUTENT [Suspect]
     Indication: NEUROENDOCRINE TUMOUR
     Dosage: 50 MG (50 MG, DAILY), ORAL
     Route: 048
     Dates: start: 20060717, end: 20060811
  2. LANTUS [Suspect]
     Indication: DIABETES MELLITUS
     Dosage: 90 UNITS (DAILY), SUBCUTANEOUS
     Route: 058
     Dates: start: 20040101
  3. METFORMIN HCL [Concomitant]
  4. BYETTA [Concomitant]
  5. ACIPHEX (RABERPRAZOLE SODIUM) [Concomitant]
  6. ASPIRIN [Concomitant]

REACTIONS (4)
  - HYPOGLYCAEMIA [None]
  - INFLUENZA LIKE ILLNESS [None]
  - METABOLIC DISORDER [None]
  - PYREXIA [None]
